FAERS Safety Report 9462057 (Version 2)
Quarter: 2013Q3

REPORT INFORMATION
  Report Type: Spontaneous
  Country: JP (occurrence: JP)
  Receive Date: 20130816
  Receipt Date: 20130827
  Transmission Date: 20140515
  Serious: Yes (Other)
  Sender: FDA-Public Use
  Company Number: JP-PFIZER INC-2013236681

PATIENT
  Age: 3 Decade
  Sex: Female

DRUGS (4)
  1. LIPITOR [Suspect]
     Dosage: UNK
     Route: 048
     Dates: end: 2013
  2. PROGRAF [Suspect]
     Indication: LUPUS NEPHRITIS
     Dosage: 2 MG, DAILY
     Route: 048
     Dates: end: 20130721
  3. PROGRAF [Suspect]
     Dosage: 3 MG, DAILY
     Route: 048
     Dates: start: 20130722, end: 2013
  4. NU LOTAN [Suspect]
     Dosage: UNK
     Route: 048
     Dates: end: 2013

REACTIONS (3)
  - Liver disorder [Recovered/Resolved]
  - Intentional drug misuse [Unknown]
  - Pyrexia [Recovered/Resolved]
